FAERS Safety Report 9840068 (Version 1)
Quarter: 2014Q1

REPORT INFORMATION
  Report Type: Spontaneous
  Country: GB (occurrence: GB)
  Receive Date: 20140124
  Receipt Date: 20140124
  Transmission Date: 20141002
  Serious: Yes (Other)
  Sender: FDA-Public Use
  Company Number: GB-SHIRE-ALL1-2014-00304

PATIENT
  Age: 74 Year
  Sex: Male

DRUGS (1)
  1. XAGRID [Suspect]
     Indication: THROMBOCYTOSIS
     Dosage: 0.5 MG, 2X/DAY:BID
     Route: 048

REACTIONS (1)
  - Ischaemic stroke [Unknown]
